FAERS Safety Report 5606555-3 (Version None)
Quarter: 2008Q1

REPORT INFORMATION
  Report Type: 
  Country: None (occurrence: None)
  Receive Date: 20080129
  Receipt Date: 20080122
  Transmission Date: 20080703
  Serious: Yes (Death)
  Sender: FDA-Public Use
  Company Number: US-GILEAD-2007-0014660

PATIENT
  Sex: Male

DRUGS (25)
  1. LETAIRIS [Suspect]
     Indication: PULMONARY HYPERTENSION
     Route: 048
     Dates: start: 20071101
  2. LETAIRIS [Suspect]
     Indication: SCLERODERMA
  3. COLCHICINE [Concomitant]
     Route: 048
  4. ADALAT [Concomitant]
     Indication: RAYNAUD'S PHENOMENON
     Route: 048
  5. GLUCOSAMINE CHONDROITIN [Concomitant]
  6. ZYRTEC [Concomitant]
     Route: 048
  7. EVOXAC [Concomitant]
     Route: 048
  8. GABAPENTIN [Concomitant]
     Route: 048
  9. ASPIRIN [Concomitant]
     Route: 048
  10. METHADONE HYDROCHLORIDE [Concomitant]
     Route: 048
  11. METHADONE HYDROCHLORIDE [Concomitant]
     Route: 048
  12. PRILOSEC [Concomitant]
     Route: 048
  13. FUROSEMIDE [Concomitant]
     Route: 048
     Dates: end: 20071001
  14. FUROSEMIDE [Concomitant]
     Route: 048
     Dates: start: 20071001
  15. VICODIN [Concomitant]
     Dosage: 10MG/325MG
     Route: 048
  16. VICODIN [Concomitant]
     Dosage: 5MG/500MG
     Route: 048
  17. SILDENAFIL CITRATE [Concomitant]
     Indication: PULMONARY HYPERTENSION
     Route: 048
     Dates: start: 20071001, end: 20071101
  18. SILDENAFIL CITRATE [Concomitant]
     Route: 048
  19. SPIRONOLACTONE [Concomitant]
     Route: 048
     Dates: start: 20071001
  20. ACETAMINOPHEN [Concomitant]
     Route: 048
  21. FERROUS SULFATE [Concomitant]
     Route: 048
  22. METOLAZONE [Concomitant]
     Route: 048
     Dates: start: 20071001
  23. SENNA [Concomitant]
  24. DOCUSATE SODIUM [Concomitant]
     Route: 048
  25. LORATADINE [Concomitant]
     Route: 048

REACTIONS (1)
  - DEATH [None]
